FAERS Safety Report 8880983 (Version 2)
Quarter: 2014Q2

REPORT INFORMATION
  Report Type: Spontaneous
  Country: US (occurrence: US)
  Receive Date: 20121101
  Receipt Date: 20131018
  Transmission Date: 20141212
  Serious: Yes (Other)
  Sender: FDA-Public Use
  Company Number: US-PFIZER INC-2012267301

PATIENT
  Age: 53 Year
  Sex: 0

DRUGS (1)
  1. DILANTIN [Suspect]
     Dosage: 100 MG, UNK (4 CAPSULES PO QHS 90 DAYS)
     Route: 048

REACTIONS (10)
  - Haemorrhagic stroke [Unknown]
  - Asthenia [Unknown]
  - Aphasia [Unknown]
  - Dyslexia [Unknown]
  - Dyslalia [Unknown]
  - Dyslogia [Unknown]
  - Dysarthria [Unknown]
  - Dyskinesia [Unknown]
  - Motor dysfunction [Unknown]
  - Dysacusis [Unknown]
